FAERS Safety Report 9213080 (Version 3)
Quarter: 2013Q2

REPORT INFORMATION
  Report Type: Spontaneous
  Country: US (occurrence: US)
  Receive Date: 20130405
  Receipt Date: 20130509
  Transmission Date: 20140414
  Serious: No
  Sender: FDA-Public Use
  Company Number: US-PFIZER INC-2013107185

PATIENT
  Age: 47 Year
  Sex: Female
  Weight: 68.03 kg

DRUGS (5)
  1. ADVIL COLD AND SINUS [Suspect]
     Indication: HYPERSENSITIVITY
     Dosage: UNK, 2X/DAY
     Dates: start: 201301, end: 201304
  2. NEURONTIN [Suspect]
     Indication: NERVE INJURY
     Dosage: 300 MG, 3X/DAY
     Route: 048
  3. NEURONTIN [Suspect]
     Dosage: 400 MG, 3X/DAY
     Route: 048
     Dates: start: 201211, end: 20130329
  4. CHANTIX [Suspect]
     Dosage: 1 MG, UNK
  5. HYDROCODONE [Concomitant]
     Indication: PAIN
     Dosage: 5 MG, TWO TO THREE TIMES A DAY

REACTIONS (2)
  - Tremor [Recovered/Resolved]
  - Muscle spasms [Recovered/Resolved]
